FAERS Safety Report 13285329 (Version 1)
Quarter: 2017Q1

REPORT INFORMATION
  Report Type: Spontaneous
  Country: US (occurrence: US)
  Receive Date: 20170301
  Receipt Date: 20170301
  Transmission Date: 20170428
  Serious: No
  Sender: FDA-Public Use
  Company Number: None

PATIENT
  Age: 59 Year
  Sex: Female
  Weight: 66.6 kg

DRUGS (11)
  1. CALCIUM [Concomitant]
     Active Substance: CALCIUM
  2. PRAMIPEXOLE. [Concomitant]
     Active Substance: PRAMIPEXOLE
  3. KRILL OIL [Concomitant]
     Active Substance: DIETARY SUPPLEMENT
  4. VYVANSE [Concomitant]
     Active Substance: LISDEXAMFETAMINE DIMESYLATE
  5. VITAMIN D [Concomitant]
     Active Substance: CHOLECALCIFEROL
  6. MATURE MULTIVITAMIN ONCE A DAY (ALSO HAS LYCOPENE LUTEIN CALCIUM) [Concomitant]
     Active Substance: VITAMINS
  7. PROGESTIN [Concomitant]
     Active Substance: PROGESTERONE
  8. ESTRADIOL. [Concomitant]
     Active Substance: ESTRADIOL
  9. VITAMIN B12 [Concomitant]
     Active Substance: CYANOCOBALAMIN
  10. BIOTIN [Concomitant]
     Active Substance: BIOTIN
  11. MYRBETRIQ [Suspect]
     Active Substance: MIRABEGRON
     Indication: URINARY INCONTINENCE
     Route: 048
     Dates: start: 20160101, end: 20160601

REACTIONS (1)
  - Alopecia [None]

NARRATIVE: CASE EVENT DATE: 20160401
